FAERS Safety Report 11778824 (Version 1)
Quarter: 2015Q4

REPORT INFORMATION
  Report Type: Spontaneous
  Country: IT (occurrence: IT)
  Receive Date: 20151125
  Receipt Date: 20151125
  Transmission Date: 20160304
  Serious: Yes (Hospitalization)
  Sender: FDA-Public Use
  Company Number: IT-JNJFOC-20151123511

PATIENT
  Age: 86 Year
  Sex: Female

DRUGS (1)
  1. XARELTO [Suspect]
     Active Substance: RIVAROXABAN
     Indication: THROMBOSIS PROPHYLAXIS
     Route: 048

REACTIONS (3)
  - Diarrhoea [Recovered/Resolved with Sequelae]
  - Haematemesis [Recovered/Resolved with Sequelae]
  - Melaena [Recovered/Resolved with Sequelae]

NARRATIVE: CASE EVENT DATE: 20151113
